FAERS Safety Report 6241629-8 (Version None)
Quarter: 2009Q2

REPORT INFORMATION
  Report Type: 
  Country: None (occurrence: None)
  Receive Date: 20090623
  Receipt Date: 20041023
  Transmission Date: 20091009
  Serious: Yes (Hospitalization)
  Sender: FDA-Public Use
  Company Number: ES-ROCHE-393941

PATIENT
  Sex: Male
  Weight: 68 kg

DRUGS (55)
  1. MYCOPHENOLATE MOFETIL [Suspect]
     Route: 048
     Dates: start: 20031212
  2. MYCOPHENOLATE MOFETIL [Suspect]
     Route: 048
     Dates: start: 20031216
  3. MYCOPHENOLATE MOFETIL [Suspect]
     Route: 048
     Dates: start: 20031217
  4. MYCOPHENOLATE MOFETIL [Suspect]
     Route: 048
     Dates: start: 20040310
  5. MYCOPHENOLATE MOFETIL [Suspect]
     Route: 048
     Dates: start: 20040311
  6. MYCOPHENOLATE MOFETIL [Suspect]
     Route: 048
     Dates: start: 20040312
  7. MYCOPHENOLATE MOFETIL [Suspect]
     Route: 048
     Dates: start: 20040324
  8. MYCOPHENOLATE MOFETIL [Suspect]
     Route: 048
     Dates: start: 20040416
  9. MYCOPHENOLATE MOFETIL [Suspect]
     Route: 048
     Dates: start: 20040504
  10. MYCOPHENOLATE MOFETIL [Suspect]
     Route: 048
     Dates: start: 20040507
  11. MYCOPHENOLATE MOFETIL [Suspect]
     Route: 048
     Dates: start: 20040525
  12. MYCOPHENOLATE MOFETIL [Suspect]
     Route: 048
     Dates: start: 20040929, end: 20041008
  13. MYCOPHENOLATE MOFETIL [Suspect]
     Route: 048
     Dates: start: 20041015
  14. CYCLOSPORINE [Suspect]
     Dosage: DRUG REPORTED: CYCLOSPORINE FORM: CAPSULE
     Route: 048
     Dates: start: 20031212, end: 20040324
  15. CYCLOSPORINE [Suspect]
     Dosage: FORM: CAPSULE
     Route: 048
     Dates: start: 20040325
  16. CYCLOSPORINE [Suspect]
     Dosage: FORM: CAPSULE
     Route: 048
     Dates: start: 20041027
  17. CYCLOSPORINE [Suspect]
     Dosage: FORM: TABLET
     Route: 048
     Dates: start: 20041029
  18. PREDNISONE [Suspect]
     Dosage: FORM: IV VIAL
     Route: 050
     Dates: start: 20031212, end: 20031213
  19. PREDNISONE [Suspect]
     Dosage: FORM: TABLET
     Route: 050
     Dates: start: 20031213, end: 20040319
  20. PREDNISONE [Suspect]
     Dosage: FORM: IV VIAL
     Route: 050
     Dates: start: 20030319, end: 20030320
  21. PREDNISONE [Suspect]
     Dosage: FORM: TABLET
     Route: 050
     Dates: start: 20040320, end: 20040503
  22. PREDNISONE [Suspect]
     Dosage: FORM: IV VIAL
     Route: 050
     Dates: start: 20040503, end: 20040507
  23. PREDNISONE [Suspect]
     Dosage: FORM: TABLET
     Route: 050
     Dates: start: 20040507
  24. OMEPRAZOL [Concomitant]
     Route: 048
     Dates: start: 20031218
  25. COTRIM [Concomitant]
     Route: 048
     Dates: start: 20031214, end: 20040525
  26. DOXAZOSIN MESYLATE [Concomitant]
     Route: 048
     Dates: start: 20040416, end: 20041007
  27. DOXAZOSIN MESYLATE [Concomitant]
     Route: 048
     Dates: start: 20041013
  28. LEVOTHYROXINE [Concomitant]
     Route: 048
     Dates: start: 20031217
  29. FUROSEMIDE [Concomitant]
     Route: 048
     Dates: start: 20040831
  30. ATENOLOL [Concomitant]
     Route: 048
     Dates: start: 20040217, end: 20040416
  31. ATENOLOL [Concomitant]
     Route: 048
     Dates: start: 20040507
  32. ATENOLOL [Concomitant]
     Route: 048
     Dates: start: 20040831, end: 20041027
  33. ATENOLOL [Concomitant]
     Route: 048
     Dates: start: 20050310
  34. AMLODIPINE [Concomitant]
     Route: 048
     Dates: start: 20031229, end: 20040318
  35. LOSARTAN POTASSIUM [Concomitant]
     Route: 048
     Dates: start: 20040108, end: 20040217
  36. BROMAZEPAM [Concomitant]
     Route: 048
     Dates: start: 20031213, end: 20040304
  37. FERROUS SULFATE TAB [Concomitant]
     Route: 048
     Dates: start: 20031223, end: 20040304
  38. AMOXICILLIN AND CLAVULANATE POTASSIUM [Concomitant]
     Dosage: DRUG REPORTED: AMOXICILLIN-CLAVULANIC, FORM: VIAL
     Route: 042
     Dates: start: 20031212
  39. AMOXICILLIN AND CLAVULANATE POTASSIUM [Concomitant]
     Dosage: DRUG REPORTED: AMOXICILLIN-CLAVULANIC
     Route: 048
     Dates: start: 20040108, end: 20040115
  40. AMOXICILLIN AND CLAVULANATE POTASSIUM [Concomitant]
     Dosage: DRUG REPORTED: AMOXICILLIN-CLAVULANIC
     Route: 048
     Dates: start: 20050202, end: 20050209
  41. CEFTRIAXONE [Concomitant]
     Dosage: FORM: VIAL
     Route: 042
     Dates: start: 20040304, end: 20040312
  42. CEFTRIAXONE [Concomitant]
     Route: 042
     Dates: start: 20040319, end: 20040323
  43. CEFTRIAXONE [Concomitant]
     Route: 042
     Dates: start: 20041007
  44. CEFTRIAXONE [Concomitant]
     Route: 042
     Dates: start: 20041013
  45. CIPROFLOXACIN HCL [Concomitant]
     Route: 048
     Dates: start: 20031218, end: 20031223
  46. CIPROFLOXACIN HCL [Concomitant]
     Route: 048
     Dates: start: 20040125, end: 20040203
  47. CIPROFLOXACIN HCL [Concomitant]
     Route: 048
     Dates: start: 20040204, end: 20040220
  48. CIPROFLOXACIN HCL [Concomitant]
     Route: 048
     Dates: start: 20040313, end: 20040315
  49. CIPROFLOXACIN HCL [Concomitant]
     Route: 048
     Dates: start: 20040324, end: 20040402
  50. ERYTHROPOIETINE [Concomitant]
     Dosage: DRUG REPORTED: ERYTHROPOIETIN, FORM: VIAL
     Route: 058
     Dates: start: 20031217
  51. ERYTHROPOIETINE [Concomitant]
     Route: 058
     Dates: start: 20031223, end: 20031226
  52. ERYTHROPOIETINE [Concomitant]
     Route: 058
     Dates: start: 20040311
  53. ERYTHROPOIETINE [Concomitant]
     Route: 058
     Dates: start: 20040315
  54. ERYTHROPOIETINE [Concomitant]
     Route: 058
     Dates: start: 20040320, end: 20040324
  55. VALACYCLOVIR [Concomitant]
     Route: 048
     Dates: start: 20040219, end: 20040305

REACTIONS (7)
  - GASTRITIS ATROPHIC [None]
  - GASTROOESOPHAGEAL REFLUX DISEASE [None]
  - OBSTRUCTIVE UROPATHY [None]
  - PNEUMONIA [None]
  - PYELONEPHRITIS [None]
  - URETERIC STENOSIS [None]
  - URINARY TRACT INFECTION [None]
